FAERS Safety Report 18277561 (Version 1)
Quarter: 2020Q3

REPORT INFORMATION
  Report Type: Spontaneous
  Country: EG (occurrence: EG)
  Receive Date: 20200917
  Receipt Date: 20200917
  Transmission Date: 20201103
  Serious: Yes (Hospitalization, Other)
  Sender: FDA-Public Use
  Company Number: EG-STRIDES ARCOLAB LIMITED-2020SP011010

PATIENT
  Age: 9 Month
  Sex: Male

DRUGS (3)
  1. BETAMETHASONE. [Concomitant]
     Active Substance: BETAMETHASONE
     Indication: PRODUCT USED FOR UNKNOWN INDICATION
     Dosage: 1 MILLILITER, SUBTENON INJECTION
     Route: 065
  2. DEXAMETHASONE. [Concomitant]
     Active Substance: DEXAMETHASONE
     Indication: PRODUCT USED FOR UNKNOWN INDICATION
     Dosage: 0.6 MILLIGRAM/KILOGRAM/DOSE, TWO DAILY DOSES
     Route: 048
  3. VANCOMYCIN [Suspect]
     Active Substance: VANCOMYCIN
     Indication: ANTIBIOTIC PROPHYLAXIS
     Dosage: UNK, TOTAL, IRRIGATING SOLUTION
     Route: 031

REACTIONS (6)
  - Retinal vasculitis [Recovered/Resolved]
  - Vitreous haemorrhage [Recovered/Resolved]
  - Retinal vascular disorder [Recovered/Resolved]
  - Retinal toxicity [Recovered/Resolved]
  - Retinopathy [Recovered/Resolved]
  - Retinal haemorrhage [Recovered/Resolved]
